FAERS Safety Report 6658154-2 (Version None)
Quarter: 2010Q1

REPORT INFORMATION
  Report Type: 
  Country: None (occurrence: None)
  Receive Date: 20100330
  Receipt Date: 20100323
  Transmission Date: 20100710
  Serious: Yes (Other)
  Sender: FDA-Public Use
  Company Number: A0852443A

PATIENT
  Age: 35 Year
  Sex: Female

DRUGS (4)
  1. AUGMENTIN XR [Suspect]
     Indication: LYME DISEASE
     Route: 048
     Dates: start: 20091001, end: 20091201
  2. VICODIN [Suspect]
     Indication: PAIN MANAGEMENT
     Route: 065
  3. AXOTAL [Concomitant]
  4. PARACETAMOL [Concomitant]

REACTIONS (4)
  - DIARRHOEA [None]
  - GASTRIC ULCER [None]
  - MALAISE [None]
  - VOMITING [None]
